FAERS Safety Report 23381492 (Version 1)
Quarter: 2024Q1

REPORT INFORMATION
  Report Type: Spontaneous
  Country: CH (occurrence: CH)
  Receive Date: 20240109
  Receipt Date: 20240109
  Transmission Date: 20240410
  Serious: Yes (Hospitalization, Other)
  Sender: FDA-Public Use
  Company Number: None

PATIENT
  Age: 78 Year
  Sex: Female

DRUGS (6)
  1. METHOTREXATE [Suspect]
     Active Substance: METHOTREXATE
     Indication: Polymyalgia rheumatica
     Dosage: UNK
     Dates: start: 2019, end: 2020
  2. METHOTREXATE [Suspect]
     Active Substance: METHOTREXATE
     Indication: Rheumatoid arthritis
  3. ARAVA [Suspect]
     Active Substance: LEFLUNOMIDE
     Indication: Rheumatoid arthritis
     Dosage: 10MG QD
     Route: 048
     Dates: start: 202106, end: 202201
  4. ARAVA [Suspect]
     Active Substance: LEFLUNOMIDE
     Indication: Polymyalgia rheumatica
  5. ADALIMUMAB [Suspect]
     Active Substance: ADALIMUMAB\ISOPROPYL ALCOHOL
     Indication: Rheumatoid arthritis
     Dosage: 40MG QOW
     Route: 058
     Dates: start: 202110, end: 20230809
  6. ADALIMUMAB [Suspect]
     Active Substance: ADALIMUMAB\ISOPROPYL ALCOHOL
     Indication: Polymyalgia rheumatica
     Dosage: 40 MG, QOW
     Dates: start: 20230929, end: 202310

REACTIONS (2)
  - Disseminated tuberculosis [Not Recovered/Not Resolved]
  - Cholestasis [Not Recovered/Not Resolved]

NARRATIVE: CASE EVENT DATE: 20231018
